FAERS Safety Report 16394596 (Version 3)
Quarter: 2020Q3

REPORT INFORMATION
  Report Type: Report from Study
  Country: None (occurrence: AR)
  Receive Date: 20190605
  Receipt Date: 20200919
  Transmission Date: 20201102
  Serious: Yes (Other)
  Sender: FDA-Public Use
  Company Number: AR-ABBVIE-19K-007-2804874-00

PATIENT
  Age: 32 Year
  Sex: Female

DRUGS (1)
  1. HUMIRA [Suspect]
     Active Substance: ADALIMUMAB
     Indication: ANKYLOSING SPONDYLITIS
     Route: 058
     Dates: start: 20160906, end: 20190614

REACTIONS (9)
  - Abdominal pain [Unknown]
  - Arthralgia [Unknown]
  - Fall [Unknown]
  - Pancreatic mass [Recovering/Resolving]
  - Mobility decreased [Unknown]
  - Tendonitis [Recovering/Resolving]
  - Localised oedema [Unknown]
  - Pain [Unknown]
  - Muscle spasms [Unknown]

NARRATIVE: CASE EVENT DATE: 201901
